FAERS Safety Report 10131195 (Version 3)
Quarter: 2014Q2

REPORT INFORMATION
  Report Type: Report from Study
  Country: DE (occurrence: DE)
  Receive Date: 20140428
  Receipt Date: 20140516
  Transmission Date: 20141212
  Serious: Yes (Hospitalization)
  Sender: FDA-Public Use
  Company Number: DE-JNJFOC-20140418205

PATIENT
  Age: 65 Year
  Sex: Male
  Weight: 96 kg

DRUGS (2)
  1. IBRUTINIB [Suspect]
     Route: 048
  2. IBRUTINIB [Suspect]
     Indication: CHRONIC LYMPHOCYTIC LEUKAEMIA
     Route: 048
     Dates: start: 20130317

REACTIONS (2)
  - Post procedural haematuria [Recovered/Resolved]
  - Urinary tract infection [Recovered/Resolved]
